FAERS Safety Report 4522117-3 (Version None)
Quarter: 2004Q4

REPORT INFORMATION
  Report Type: 
  Country: None (occurrence: None)
  Receive Date: 20041207
  Receipt Date: 20041129
  Transmission Date: 20050328
  Serious: Yes (Disabling)
  Sender: FDA-Public Use
  Company Number: 002#2#2004-00283

PATIENT
  Sex: Female

DRUGS (1)
  1. REGLAN [Suspect]
     Dosage: ORAL
     Route: 048
     Dates: start: 19981022, end: 20020801

REACTIONS (4)
  - DYSKINESIA [None]
  - DYSTONIA [None]
  - MUSCLE SPASMS [None]
  - OPISTHOTONUS [None]
